FAERS Safety Report 15450618 (Version 3)
Quarter: 2019Q1

REPORT INFORMATION
  Report Type: Report from Study
  Country: US (occurrence: US)
  Receive Date: 20181001
  Receipt Date: 20190218
  Transmission Date: 20190417
  Serious: Yes (Other)
  Sender: FDA-Public Use
  Company Number: PHEH2018US040214

PATIENT
  Sex: Male
  Weight: 147 kg

DRUGS (1)
  1. VOTRIENT [Suspect]
     Active Substance: PAZOPANIB HYDROCHLORIDE
     Indication: METASTATIC RENAL CELL CARCINOMA
     Dosage: 600 MG, QD (200 MG 3 TAB DAILY)
     Route: 048
     Dates: start: 20170512

REACTIONS (2)
  - Hypoacusis [Unknown]
  - Dementia [Unknown]
